FAERS Safety Report 4927706-X (Version None)
Quarter: 2006Q1

REPORT INFORMATION
  Report Type: 
  Country: None (occurrence: None)
  Receive Date: 20060228
  Receipt Date: 20050316
  Transmission Date: 20060701
  Serious: Yes (Hospitalization)
  Sender: FDA-Public Use
  Company Number: US-MERCK-0503USA03289

PATIENT
  Age: 71 Year
  Sex: Female
  Weight: 59 kg

DRUGS (3)
  1. VIOXX [Suspect]
     Indication: JOINT SWELLING
     Route: 048
     Dates: start: 19990624, end: 20010821
  2. ATACAND [Concomitant]
     Route: 048
  3. XALATAN [Concomitant]
     Route: 047

REACTIONS (9)
  - ACUTE MYOCARDIAL INFARCTION [None]
  - APHASIA [None]
  - ARRHYTHMIA [None]
  - CEREBROVASCULAR ACCIDENT [None]
  - CORONARY ARTERY DISEASE [None]
  - MUSCLE SPASMS [None]
  - PYREXIA [None]
  - THROMBOSIS [None]
  - VENTRICULAR TACHYCARDIA [None]
